FAERS Safety Report 8445980-2 (Version None)
Quarter: 2012Q2

REPORT INFORMATION
  Report Type: 
  Country: None (occurrence: None)
  Receive Date: 20120618
  Receipt Date: 20120612
  Transmission Date: 20120825
  Serious: No
  Sender: FDA-Public Use
  Company Number: US-PFIZER INC-2012142379

PATIENT
  Age: 17 Year
  Sex: Male

DRUGS (1)
  1. ZITHROMAX [Suspect]
     Indication: OROPHARYNGEAL PAIN
     Dosage: UNK
     Dates: start: 20120101

REACTIONS (1)
  - MALAISE [None]
